FAERS Safety Report 8129671-3 (Version None)
Quarter: 2012Q1

REPORT INFORMATION
  Report Type: 
  Country: None (occurrence: None)
  Receive Date: 20120103
  Receipt Date: 20111106
  Transmission Date: 20120608
  Serious: No
  Sender: FDA-Public Use
  Company Number: AE-2011-003143

PATIENT
  Age: 60 Year
  Sex: Male
  Weight: 65.7716 kg

DRUGS (11)
  1. CENTRUM SILVER MULTIVITAMIN (CENTRUM SILVER) [Concomitant]
  2. SUBOXONE [Concomitant]
  3. SEROQUEL XR [Concomitant]
  4. MELATONIN (MELATONIN) [Concomitant]
  5. PEGASYS [Concomitant]
  6. NASALIDE NASAL SPRAY (FLUNISOLIDE) [Concomitant]
  7. INCIVEK [Suspect]
     Dosage: 2250 MG (750 MG, 1 IN 8 HR), ORAL
     Route: 048
     Dates: start: 20111025
  8. IBUPROFEN [Concomitant]
  9. RIBAVIRIN [Concomitant]
  10. LISINOPRIL [Concomitant]
  11. HYDROXYZINE [Concomitant]

REACTIONS (5)
  - DISTURBANCE IN ATTENTION [None]
  - RASH PRURITIC [None]
  - FATIGUE [None]
  - VOMITING [None]
  - NAUSEA [None]
